FAERS Safety Report 19694295 (Version 2)
Quarter: 2021Q4

REPORT INFORMATION
  Report Type: Spontaneous
  Country: IE (occurrence: IE)
  Receive Date: 20210812
  Receipt Date: 20211007
  Transmission Date: 20220303
  Serious: Yes (Other)
  Sender: FDA-Public Use
  Company Number: NVSC2021IE175029

PATIENT

DRUGS (4)
  1. BEOVU [Suspect]
     Active Substance: BROLUCIZUMAB-DBLL
     Indication: Product used for unknown indication
     Dosage: UNK
     Route: 031
     Dates: start: 20210303
  2. BEOVU [Suspect]
     Active Substance: BROLUCIZUMAB-DBLL
     Dosage: UNK
     Route: 031
     Dates: start: 20210331
  3. BEOVU [Suspect]
     Active Substance: BROLUCIZUMAB-DBLL
     Dosage: UNK
     Route: 031
     Dates: start: 20210428
  4. BEOVU [Suspect]
     Active Substance: BROLUCIZUMAB-DBLL
     Dosage: UNK
     Route: 031
     Dates: start: 20210623

REACTIONS (4)
  - Vitritis [Not Recovered/Not Resolved]
  - Vitreous floaters [Unknown]
  - Visual acuity reduced [Unknown]
  - Vitreous haemorrhage [Unknown]
